FAERS Safety Report 9700752 (Version 1)
Quarter: 2013Q4

REPORT INFORMATION
  Report Type: Spontaneous
  Country: US (occurrence: US)
  Receive Date: 20131121
  Receipt Date: 20131121
  Transmission Date: 20140711
  Serious: Yes (Other)
  Sender: FDA-Public Use
  Company Number: US-PFIZER INC-2013331726

PATIENT
  Age: 49 Year
  Sex: Female
  Weight: 89.8 kg

DRUGS (6)
  1. NEURONTIN [Suspect]
     Indication: DIABETIC NEUROPATHY
     Dosage: UNK
     Dates: start: 2011
  2. NEURONTIN [Suspect]
     Dosage: 400 MG, 4X/DAY
     Dates: start: 2013
  3. NEURONTIN [Suspect]
     Dosage: 400 MG, 6X/DAY
     Dates: start: 2013
  4. NEURONTIN [Suspect]
     Dosage: UNK
     Dates: end: 2013
  5. LEVOTHYROXINE [Concomitant]
     Indication: THYROID DISORDER
     Dosage: 100 UG, 1X/DAY
  6. LEVOTHYROXINE [Concomitant]
     Dosage: 112 UG, 1X/DAY

REACTIONS (9)
  - Intentional drug misuse [Unknown]
  - Hypertension [Recovered/Resolved]
  - Blood cholesterol increased [Recovering/Resolving]
  - Pain in extremity [Unknown]
  - Dysstasia [Unknown]
  - Neuralgia [Recovering/Resolving]
  - Burning sensation [Recovering/Resolving]
  - Paraesthesia [Recovering/Resolving]
  - Drug ineffective [Unknown]
